FAERS Safety Report 7584856-X (Version None)
Quarter: 2011Q2

REPORT INFORMATION
  Report Type: 
  Country: None (occurrence: None)
  Receive Date: 20110630
  Receipt Date: 20110624
  Transmission Date: 20111010
  Serious: Yes (Other)
  Sender: FDA-Public Use
  Company Number: PHHY2009CA22524

PATIENT
  Sex: Female

DRUGS (4)
  1. ORTHO TRI-CYCLEN [Concomitant]
  2. SANDOSTATIN LAR [Suspect]
     Dosage: 20 MG, QMO
     Route: 030
  3. SANDOSTATIN LAR [Suspect]
     Indication: ACROMEGALY
     Dosage: 20 MG, EVERY 4 WEEKS
     Route: 030
     Dates: start: 20060707
  4. SANDOSTATIN LAR [Suspect]
     Dosage: 20 MG, EVERY 4 WEEKS
     Route: 030

REACTIONS (7)
  - ABDOMINAL DISCOMFORT [None]
  - SKIN DISCOLOURATION [None]
  - CONTUSION [None]
  - HEADACHE [None]
  - AMENORRHOEA [None]
  - RASH [None]
  - MUSCLE SPASMS [None]
